FAERS Safety Report 5198024-2 (Version None)
Quarter: 2006Q4

REPORT INFORMATION
  Report Type: 
  Country: None (occurrence: None)
  Receive Date: 20061228
  Receipt Date: 20061219
  Transmission Date: 20070319
  Serious: Yes (Life-Threatening, Hospitalization)
  Sender: FDA-Public Use
  Company Number: 232938

PATIENT
  Age: 61 Year
  Sex: Male
  Weight: 80.4 kg

DRUGS (13)
  1. BEVACIZUMAB (BEVACIZUMAB) PWDR + SOLVENT, INFUSION SOLN, 100MG [Suspect]
     Indication: COLORECTAL CANCER
     Dosage: 5 MG/KG, Q2W, INTRAVENOUS
     Route: 042
     Dates: start: 20061020, end: 20061117
  2. OXALIPLATIN [Suspect]
     Indication: COLORECTAL CANCER
     Dosage: 85 MG/M2, Q2W, INTRAVENOUS
     Route: 042
     Dates: start: 20061020, end: 20061117
  3. CAPECITABINE (CAPECITABINE) [Suspect]
     Indication: COLORECTAL CANCER
     Dosage: 750 MG/M2, Q4W, ORAL
     Route: 048
     Dates: start: 20061021, end: 20061121
  4. ATENOLOL [Concomitant]
  5. PLAVIX [Concomitant]
  6. DIOVAN [Concomitant]
  7. COMPAZINE [Concomitant]
  8. IMODIUM [Concomitant]
  9. VITAMIN B (VITAMIN B NOS) [Concomitant]
  10. FOLIC ACID [Concomitant]
  11. PRILOSEC [Concomitant]
  12. FLOMAX [Concomitant]
  13. OXYCONTIN [Concomitant]

REACTIONS (10)
  - ADHESION [None]
  - DIARRHOEA [None]
  - HYPOKALAEMIA [None]
  - HYPOMAGNESAEMIA [None]
  - HYPONATRAEMIA [None]
  - HYPOPHOSPHATAEMIA [None]
  - INTESTINAL OBSTRUCTION [None]
  - METASTASES TO PERITONEUM [None]
  - NAUSEA [None]
  - VOMITING [None]
